FAERS Safety Report 11167653 (Version 1)
Quarter: 2015Q2

REPORT INFORMATION
  Report Type: Spontaneous
  Country: US (occurrence: None)
  Receive Date: 20150417
  Receipt Date: 20150417
  Transmission Date: 20150821
  Serious: Yes (Other)
  Sender: FDA-Public Use
  Company Number: DEX 2015-0103

PATIENT
  Age: 68 Year
  Sex: Female

DRUGS (6)
  1. DIGOXIN. [Concomitant]
     Active Substance: DIGOXIN
  2. FENTANYL. [Suspect]
     Active Substance: FENTANYL
     Indication: SEDATION
  3. METOPROLOL [Concomitant]
     Active Substance: METOPROLOL
  4. ASPIRIN. [Concomitant]
     Active Substance: ASPIRIN
  5. TISSUE PLASMINOGEN ACTIVATOR, RECOMBINANT [Suspect]
     Active Substance: ALTEPLASE
     Dosage: INTRAVENOUS (NOT OTHERWISE SPECIFIED)
     Route: 042
  6. DEXMEDETOMIDINE (DEXMEDETOMIDINE) [Suspect]
     Active Substance: DEXMEDETOMIDINE
     Indication: SEDATION
     Dosage: DOSE WAS TITRATED (0.5 UG/KG, 1 IN 1 H) INTRAVENOUS (NOT OTHERWISE SPECIFIED)
     Route: 042

REACTIONS (1)
  - Angioedema [None]
